FAERS Safety Report 8190197-2 (Version None)
Quarter: 2012Q1

REPORT INFORMATION
  Report Type: 
  Country: None (occurrence: None)
  Receive Date: 20120305
  Receipt Date: 20120223
  Transmission Date: 20120608
  Serious: Yes (Other)
  Sender: FDA-Public Use
  Company Number: 2012P1007991

PATIENT
  Age: 44 Year
  Sex: Female

DRUGS (3)
  1. IBUPROFEN (ADVIL) [Concomitant]
  2. METHOCARBAMOL TAB [Suspect]
     Indication: MUSCLE RELAXANT THERAPY
     Dosage: 250 MG;BID
     Dates: start: 20111101
  3. VICODIN [Concomitant]

REACTIONS (5)
  - DRUG INEFFECTIVE [None]
  - PRODUCT FRIABLE [None]
  - TABLET PHYSICAL ISSUE [None]
  - SURGERY [None]
  - NEOPLASM [None]
